FAERS Safety Report 14446902 (Version 1)
Quarter: 2018Q1

REPORT INFORMATION
  Report Type: Spontaneous
  Country: US (occurrence: US)
  Receive Date: 20180126
  Receipt Date: 20180126
  Transmission Date: 20180509
  Serious: No
  Sender: FDA-Public Use
  Company Number: US-009507513-1801USA004029

PATIENT
  Age: 25 Year
  Sex: Female
  Weight: 48.98 kg

DRUGS (1)
  1. NEXPLANON [Suspect]
     Active Substance: ETONOGESTREL
     Dosage: 1 DF, UNK
     Route: 059
     Dates: start: 20170525

REACTIONS (6)
  - Dysmenorrhoea [Unknown]
  - Pain [Unknown]
  - Mood altered [Unknown]
  - Device dislocation [Unknown]
  - Complication of device removal [Unknown]
  - Menorrhagia [Unknown]

NARRATIVE: CASE EVENT DATE: 20170613
